FAERS Safety Report 8546953-1 (Version None)
Quarter: 2012Q3

REPORT INFORMATION
  Report Type: 
  Country: None (occurrence: None)
  Receive Date: 20120727
  Receipt Date: 20120710
  Transmission Date: 20120928
  Serious: No
  Sender: FDA-Public Use
  Company Number: US-009507513-2012SP036910

PATIENT

DRUGS (2)
  1. PEG-INTRON [Suspect]
     Dosage: 150 ?G, QW
     Route: 058
     Dates: start: 20120215
  2. REBETOL [Suspect]

REACTIONS (1)
  - FATIGUE [None]
